FAERS Safety Report 4886121-8 (Version None)
Quarter: 2006Q1

REPORT INFORMATION
  Report Type: 
  Country: None (occurrence: None)
  Receive Date: 20060118
  Receipt Date: 20060118
  Transmission Date: 20060701
  Serious: Yes (Other)
  Sender: FDA-Public Use
  Company Number: None

PATIENT
  Age: 57 Year
  Sex: Female

DRUGS (6)
  1. VIVELLE-DOT [Suspect]
     Indication: BLOOD OESTROGEN
     Dosage: APPLY 1 PATCH TWICE WEEKLY
     Dates: start: 20051204
  2. VIVELLE-DOT [Suspect]
  3. DETROL LA [Concomitant]
  4. ZETIA [Concomitant]
  5. FEXOFENADINE HCL [Concomitant]
  6. FLONASE [Concomitant]

REACTIONS (2)
  - APPLICATION SITE IRRITATION [None]
  - PHARMACEUTICAL PRODUCT COMPLAINT [None]
